FAERS Safety Report 8965541 (Version 1)
Quarter: 2012Q4

REPORT INFORMATION
  Report Type: Spontaneous
  Country: US (occurrence: None)
  Receive Date: 20121212
  Receipt Date: 20121212
  Transmission Date: 20130627
  Serious: No
  Sender: FDA-Public Use
  Company Number: None

PATIENT
  Age: 51 Year
  Sex: Female
  Weight: 83.01 kg

DRUGS (3)
  1. NEVANAC [Suspect]
     Indication: CATARACT OPERATION
     Dosage: 1 drop  OD - BID, - OS - TID  Intraocular
     Route: 031
     Dates: start: 20121106, end: 20121207
  2. LOTEMAX [Suspect]
     Indication: CATARACT OPERATION
     Dosage: 1 drop  OD - BID,  OS - TID  Intraocular
     Route: 031
     Dates: start: 20121106, end: 20121207
  3. DORZOLOMIDE HCL - TIMOLOL MALEATE [Concomitant]

REACTIONS (3)
  - Madarosis [None]
  - Hair colour changes [None]
  - Pigmentation disorder [None]
